FAERS Safety Report 8494419-X (Version None)
Quarter: 2012Q3

REPORT INFORMATION
  Report Type: 
  Country: None (occurrence: None)
  Receive Date: 20120709
  Receipt Date: 20111215
  Transmission Date: 20120928
  Serious: Yes (Other)
  Sender: FDA-Public Use
  Company Number: DE-UCBSA-060867

PATIENT
  Sex: Female

DRUGS (10)
  1. TILIDIN [Concomitant]
     Indication: PAIN
     Dosage: 50/4,FORMULATION-SOLUTION/DROPS,
  2. PANTOPRAZOLE [Concomitant]
  3. CALCIUM EFFERVESCENT [Concomitant]
     Indication: OSTEOPOROSIS
  4. IBUPROFEN [Concomitant]
     Indication: PAIN
  5. JODTHYROX [Concomitant]
     Indication: THYROID DISORDER
  6. ERGOCALCIFEROL [Concomitant]
     Indication: VITAMIN D DEFICIENCY
     Dosage: DOSE PER INTAKE-1000 IE
  7. CIMZIA [Suspect]
     Indication: RHEUMATOID ARTHRITIS
     Dates: start: 20110222, end: 20111101
  8. IBUPROFEN [Concomitant]
     Indication: INFLAMMATION
  9. INSIDON [Concomitant]
     Indication: DEPRESSION
  10. PREDNISOLONE [Concomitant]
     Indication: INFLAMMATION

REACTIONS (1)
  - RASH [None]
